FAERS Safety Report 4497979-9 (Version None)
Quarter: 2004Q4

REPORT INFORMATION
  Report Type: 
  Country: None (occurrence: None)
  Receive Date: 20041105
  Receipt Date: 20041022
  Transmission Date: 20050328
  Serious: Yes (Other)
  Sender: FDA-Public Use
  Company Number: 209885

PATIENT
  Sex: 0

DRUGS (3)
  1. AVASTIN(BEVACIZUMAB) PWDR + SOLVENT,INFUSION SOLN, 100MG [Suspect]
     Dosage: INTRAVENOUS
     Route: 042
  2. FLUOROURACIL [Suspect]
     Dosage: INTRAVENOUS
     Route: 042
  3. ELOXATIN [Suspect]
     Dosage: INTRAVENOUS
     Route: 042

REACTIONS (1)
  - HAEMOLYTIC URAEMIC SYNDROME [None]
